FAERS Safety Report 4764090-9 (Version None)
Quarter: 2005Q3

REPORT INFORMATION
  Report Type: 
  Country: None (occurrence: None)
  Receive Date: 20050908
  Receipt Date: 20050729
  Transmission Date: 20060218
  Serious: Yes (Hospitalization)
  Sender: FDA-Public Use
  Company Number: US-MERCK-0508USA00428

PATIENT
  Age: 49 Year
  Sex: Female
  Weight: 75 kg

DRUGS (6)
  1. VIOXX [Suspect]
     Indication: JOINT INJURY
     Route: 048
     Dates: start: 19990101, end: 20030907
  2. PROVERA [Concomitant]
     Route: 065
  3. VALIUM [Concomitant]
     Route: 065
  4. LORCET-HD [Concomitant]
     Route: 065
  5. COMBIVENT [Concomitant]
     Route: 065
  6. MICRONASE [Concomitant]
     Route: 065

REACTIONS (1)
  - MYOCARDIAL INFARCTION [None]
